FAERS Safety Report 22306904 (Version 1)
Quarter: 2023Q2

REPORT INFORMATION
  Report Type: Spontaneous
  Country: US (occurrence: US)
  Receive Date: 20230511
  Receipt Date: 20230511
  Transmission Date: 20230721
  Serious: Yes (Hospitalization, Other)
  Sender: FDA-Public Use
  Company Number: US-ORG100016242-2023000148

PATIENT

DRUGS (3)
  1. EXPAREL [Suspect]
     Active Substance: BUPIVACAINE
     Indication: Pectus excavatum
     Dosage: 20 ML INJECTED BILATERAL SURGICAL WOUND SITES
     Route: 050
  2. EXPAREL [Suspect]
     Active Substance: BUPIVACAINE
     Indication: Pectus excavatum
     Dosage: 5 ML INCREMENTS WITHIN THE ERECTOR SPINAE INTERFACIAL PLANE
     Route: 050
  3. BUPIVACAINE [Suspect]
     Active Substance: BUPIVACAINE
     Indication: Pectus excavatum
     Dosage: 20-30 ML INTO BILATERAL WOUND SITES
     Route: 050

REACTIONS (3)
  - Surgery [Unknown]
  - Procedural haemorrhage [Unknown]
  - Bradycardia [Unknown]
